FAERS Safety Report 16050813 (Version 1)
Quarter: 2019Q1

REPORT INFORMATION
  Report Type: Spontaneous
  Country: US (occurrence: US)
  Receive Date: 20190308
  Receipt Date: 20190308
  Transmission Date: 20190418
  Serious: No
  Sender: FDA-Public Use
  Company Number: US-PFIZER INC-2019094056

PATIENT
  Age: 49 Year
  Sex: Female
  Weight: 60 kg

DRUGS (2)
  1. ESTRING [Suspect]
     Active Substance: ESTRADIOL
     Indication: ATROPHIC VULVOVAGINITIS
     Dosage: UNK (INSERT VAGINALLY AND WEAR FOR 3 MONTHS )
     Route: 067
     Dates: start: 201808
  2. ESTRING [Suspect]
     Active Substance: ESTRADIOL
     Dosage: UNK
     Dates: start: 2018

REACTIONS (3)
  - Dyspareunia [Recovered/Resolved]
  - Product odour abnormal [Recovered/Resolved]
  - Vaginal odour [Recovered/Resolved]

NARRATIVE: CASE EVENT DATE: 201808
